FAERS Safety Report 15206047 (Version 1)
Quarter: 2018Q3

REPORT INFORMATION
  Report Type: Spontaneous
  Country: DK (occurrence: DK)
  Receive Date: 20180727
  Receipt Date: 20180727
  Transmission Date: 20181010
  Serious: Yes (Hospitalization)
  Sender: FDA-Public Use
  Company Number: DK-TEVA-2018-DK-930965

PATIENT
  Sex: Female

DRUGS (1)
  1. SIMVASTATIN. [Suspect]
     Active Substance: SIMVASTATIN
     Indication: CEREBRAL ATROPHY
     Dosage: DOSIS: DOSIS GRADVIS ?GET TIL 80 MG I PERIODEN 17SEP2016 TIL 20NOV2016.
     Route: 048
     Dates: start: 20160917

REACTIONS (6)
  - Subdural haematoma [Unknown]
  - Myalgia [Unknown]
  - Multiple sclerosis [Not Recovered/Not Resolved]
  - Product use in unapproved indication [Recovered/Resolved]
  - Arthralgia [Unknown]
  - Brain operation [Recovered/Resolved]

NARRATIVE: CASE EVENT DATE: 20160917
